FAERS Safety Report 4890895-X (Version None)
Quarter: 2006Q1

REPORT INFORMATION
  Report Type: 
  Country: None (occurrence: None)
  Receive Date: 20060125
  Receipt Date: 20060117
  Transmission Date: 20060701
  Serious: Yes (Other)
  Sender: FDA-Public Use
  Company Number: US-JNJFOC-20060103758

PATIENT
  Sex: Female
  Weight: 115.67 kg

DRUGS (7)
  1. FENTANYL [Suspect]
     Route: 062
  2. DURAGESIC-100 [Suspect]
     Route: 062
  3. ATENOLOL [Concomitant]
     Indication: HYPERTENSION
     Route: 048
  4. PRILOSEC [Concomitant]
     Route: 048
  5. VICODIN [Concomitant]
  6. VICODIN [Concomitant]
     Indication: PAIN
     Dosage: AT NIGHT
  7. TOPAMAX [Concomitant]

REACTIONS (2)
  - DIABETES MELLITUS [None]
  - THERAPEUTIC RESPONSE DECREASED [None]
